FAERS Safety Report 9722449 (Version 2)
Quarter: 2014Q1

REPORT INFORMATION
  Report Type: Spontaneous
  Country: DE (occurrence: DE)
  Receive Date: 20131202
  Receipt Date: 20140123
  Transmission Date: 20141002
  Serious: Yes (Hospitalization, Other)
  Sender: FDA-Public Use
  Company Number: PHHY2013DE139116

PATIENT
  Sex: Female

DRUGS (5)
  1. GILENYA [Suspect]
     Indication: SECONDARY PROGRESSIVE MULTIPLE SCLEROSIS
     Dosage: 0.5 MG, QD
     Route: 048
     Dates: start: 20120724, end: 20131130
  2. GILENYA [Suspect]
     Indication: OFF LABEL USE
  3. BACLOFEN [Concomitant]
     Indication: MUSCLE SPASTICITY
     Dosage: 25 MG, BID
     Route: 048
  4. BISOHEXAL [Concomitant]
     Indication: HYPERTENSION
     Dosage: 2.5 MG, QD
     Route: 048
  5. PANTOZOL [Concomitant]
     Indication: ABDOMINAL DISCOMFORT
     Dosage: 20 MG, QD
     Route: 048

REACTIONS (2)
  - Psychotic disorder [Recovering/Resolving]
  - Mental disorder due to a general medical condition [Not Recovered/Not Resolved]
